FAERS Safety Report 11124334 (Version 1)
Quarter: 2015Q2

REPORT INFORMATION
  Report Type: Spontaneous
  Country: US (occurrence: None)
  Receive Date: 20150519
  Receipt Date: 20150519
  Transmission Date: 20150821
  Serious: Yes (Disabling)
  Sender: FDA-Public Use
  Company Number: None

PATIENT
  Age: 69 Year
  Sex: Female
  Weight: 54.43 kg

DRUGS (12)
  1. AVEENO ACTIVE NATURALS POSITIVELY RADIANT TINTED MOISTURIZER SPF 30 FAIR/LIGHT [Suspect]
     Active Substance: HOMOSALATE\OCTINOXATE\OCTISALATE\OXYBENZONE
     Indication: PROPHYLAXIS
  2. NORVASC [Concomitant]
     Active Substance: AMLODIPINE BESYLATE
  3. NASONEX [Concomitant]
     Active Substance: MOMETASONE FUROATE
  4. METHOD DISH LIQUID SOAP (METHYLISOTHIAZOLINONE) [Suspect]
     Active Substance: METHYLISOTHIAZOLINONE
     Indication: PRODUCT USED FOR UNKNOWN INDICATION
  5. D3 [Concomitant]
     Active Substance: 25-HYDROXYCHOLECALCIFEROL, 5-TRANS-
  6. ZOCOR [Concomitant]
     Active Substance: SIMVASTATIN
  7. ESTRACE [Concomitant]
     Active Substance: ESTRADIOL
  8. CALCIUM/MAGNESIUM [Concomitant]
  9. ATENOLOL. [Concomitant]
     Active Substance: ATENOLOL
  10. METHOD DISH LIQUID SOAP (METHYLCHLOROISOTHIAZOLINONE) [Suspect]
     Active Substance: METHYLCHLOROISOTHIAZOLINONE
  11. SENIOR MULTIVIT [Concomitant]
  12. COQ10 [Concomitant]
     Active Substance: UBIDECARENONE

REACTIONS (5)
  - Rash macular [None]
  - Rash pruritic [None]
  - Erythema [None]
  - Skin exfoliation [None]
  - Dry skin [None]

NARRATIVE: CASE EVENT DATE: 20150430
